FAERS Safety Report 6402097-6 (Version None)
Quarter: 2009Q4

REPORT INFORMATION
  Report Type: 
  Country: None (occurrence: None)
  Receive Date: 20091015
  Receipt Date: 20091008
  Transmission Date: 20100525
  Serious: Yes (Other)
  Sender: FDA-Public Use
  Company Number: CHPA2009US20113

PATIENT
  Age: 51 Year
  Sex: Female
  Weight: 104.31 kg

DRUGS (1)
  1. EXCEDRIN TENSION HEADACHE(NCH) [Suspect]
     Indication: HEADACHE
     Dosage: 2 DF, QD
     Route: 048

REACTIONS (2)
  - INTENTIONAL DRUG MISUSE [None]
  - ROTATOR CUFF REPAIR [None]
